FAERS Safety Report 9714304 (Version 2)
Quarter: 2013Q4

REPORT INFORMATION
  Report Type: Spontaneous
  Country: US (occurrence: US)
  Receive Date: 20131126
  Receipt Date: 20131126
  Transmission Date: 20140711
  Serious: No
  Sender: FDA-Public Use
  Company Number: US-GILEAD-2008-0018700

PATIENT
  Sex: Female

DRUGS (13)
  1. LETAIRIS [Suspect]
     Indication: PULMONARY ARTERIAL HYPERTENSION
     Route: 048
     Dates: start: 20080108
  2. NEXIUM [Concomitant]
  3. PSYLLIUM HUSK [Concomitant]
  4. AMBIEN [Concomitant]
  5. DARVOCET [Concomitant]
  6. PROTONIX [Concomitant]
  7. TOPAMAX [Concomitant]
  8. KLOR-CON [Concomitant]
  9. DIGITEK [Concomitant]
  10. SYNTHROID [Concomitant]
  11. PRIMIDONE [Concomitant]
  12. LASIX [Concomitant]
  13. REVATIO [Concomitant]

REACTIONS (3)
  - Impaired healing [Unknown]
  - Hair colour changes [Unknown]
  - Lichen planus [Unknown]
